FAERS Safety Report 24302921 (Version 9)
Quarter: 2025Q2

REPORT INFORMATION
  Report Type: Spontaneous
  Country: US (occurrence: US)
  Receive Date: 20240910
  Receipt Date: 20250522
  Transmission Date: 20250717
  Serious: Yes (Hospitalization)
  Sender: TRAVERE THERAPEUTICS
  Company Number: US-TRAVERE-2024TVT00846

PATIENT
  Age: 65 Year
  Sex: Male

DRUGS (8)
  1. FILSPARI [Suspect]
     Active Substance: SPARSENTAN
     Indication: IgA nephropathy
     Route: 048
     Dates: start: 20240825
  2. FILSPARI [Suspect]
     Active Substance: SPARSENTAN
     Dosage: EXPIRY DATE: 30-MAY-2026
     Route: 048
  3. FILSPARI [Suspect]
     Active Substance: SPARSENTAN
     Route: 048
  4. FILSPARI [Suspect]
     Active Substance: SPARSENTAN
     Route: 048
  5. FAMOTIDINE [Concomitant]
     Active Substance: FAMOTIDINE
  6. MYCOPHENOLIC ACID [Concomitant]
     Active Substance: MYCOPHENOLIC ACID
  7. POTASSIUM [Concomitant]
     Active Substance: POTASSIUM
  8. HYDRALAZINE [Concomitant]
     Active Substance: HYDRALAZINE HYDROCHLORIDE

REACTIONS (13)
  - Pneumonia [Unknown]
  - Dehydration [Unknown]
  - Cardiac disorder [Unknown]
  - Blood pressure decreased [Unknown]
  - Vomiting [Unknown]
  - Arthralgia [Unknown]
  - Myalgia [None]
  - Insomnia [Unknown]
  - Blood potassium decreased [Recovered/Resolved]
  - Dizziness [Unknown]
  - Blood potassium increased [None]
  - Fibromyalgia [Unknown]
  - Inappropriate schedule of product administration [Unknown]

NARRATIVE: CASE EVENT DATE: 20240825
